FAERS Safety Report 12061812 (Version 2)
Quarter: 2016Q1

REPORT INFORMATION
  Report Type: Spontaneous
  Country: US (occurrence: US)
  Receive Date: 20160210
  Receipt Date: 20160321
  Transmission Date: 20160526
  Serious: Yes (Other)
  Sender: FDA-Public Use
  Company Number: CHPA2016US000607

PATIENT
  Age: 47 Year
  Sex: Female

DRUGS (10)
  1. THERAFLU MULTI SYMPTOM SEVERE COLD [Suspect]
     Active Substance: ACETAMINOPHEN\DEXTROMETHORPHAN HYDROBROMIDE\PHENYLEPHRINE HYDROCHLORIDE
     Indication: NASAL CONGESTION
     Dosage: 1 TO4 PACKETS, QD
     Route: 048
     Dates: start: 20160103
  2. THERAFLU MULTI SYMPTOM SEVERE COLD [Suspect]
     Active Substance: ACETAMINOPHEN\DEXTROMETHORPHAN HYDROBROMIDE\PHENYLEPHRINE HYDROCHLORIDE
     Indication: OROPHARYNGEAL PAIN
     Dosage: UNK
  3. THERAFLU NIGHTTIME SEVERE COLD AND COUGH [Suspect]
     Active Substance: ACETAMINOPHEN\DIPHENHYDRAMINE HYDROCHLORIDE\PHENYLEPHRINE HYDROCHLORIDE
     Indication: SNEEZING
  4. THERAFLU MULTI SYMPTOM SEVERE COLD [Suspect]
     Active Substance: ACETAMINOPHEN\DEXTROMETHORPHAN HYDROBROMIDE\PHENYLEPHRINE HYDROCHLORIDE
     Indication: SNEEZING
  5. THERAFLU NIGHTTIME SEVERE COLD AND COUGH [Suspect]
     Active Substance: ACETAMINOPHEN\DIPHENHYDRAMINE HYDROCHLORIDE\PHENYLEPHRINE HYDROCHLORIDE
     Indication: RHINORRHOEA
  6. THERAFLU NIGHTTIME SEVERE COLD AND COUGH [Suspect]
     Active Substance: ACETAMINOPHEN\DIPHENHYDRAMINE HYDROCHLORIDE\PHENYLEPHRINE HYDROCHLORIDE
     Indication: COUGH
  7. THERAFLU NIGHTTIME SEVERE COLD AND COUGH [Suspect]
     Active Substance: ACETAMINOPHEN\DIPHENHYDRAMINE HYDROCHLORIDE\PHENYLEPHRINE HYDROCHLORIDE
     Indication: OROPHARYNGEAL PAIN
  8. THERAFLU MULTI SYMPTOM SEVERE COLD [Suspect]
     Active Substance: ACETAMINOPHEN\DEXTROMETHORPHAN HYDROBROMIDE\PHENYLEPHRINE HYDROCHLORIDE
     Indication: COUGH
     Dosage: UNK
  9. THERAFLU MULTI SYMPTOM SEVERE COLD [Suspect]
     Active Substance: ACETAMINOPHEN\DEXTROMETHORPHAN HYDROBROMIDE\PHENYLEPHRINE HYDROCHLORIDE
     Indication: RHINORRHOEA
  10. THERAFLU NIGHTTIME SEVERE COLD AND COUGH [Suspect]
     Active Substance: ACETAMINOPHEN\DIPHENHYDRAMINE HYDROCHLORIDE\PHENYLEPHRINE HYDROCHLORIDE
     Indication: NASAL CONGESTION
     Dosage: 1 TO 4 PACKETS, QD
     Route: 048
     Dates: start: 20160103

REACTIONS (3)
  - Bronchitis [Recovered/Resolved]
  - Drug ineffective [Unknown]
  - Sinusitis [Unknown]

NARRATIVE: CASE EVENT DATE: 20160103
